FAERS Safety Report 7527970-7 (Version None)
Quarter: 2011Q2

REPORT INFORMATION
  Report Type: 
  Country: None (occurrence: None)
  Receive Date: 20110516
  Receipt Date: 20110120
  Transmission Date: 20111010
  Serious: Yes (Hospitalization)
  Sender: FDA-Public Use
  Company Number: 11US001616

PATIENT
  Age: 62 Year
  Sex: Female

DRUGS (11)
  1. PLACEBO [Concomitant]
  2. NITROGLYCERN (GLYCERYL TRINITRATE) [Concomitant]
  3. TRILEPTAL [Concomitant]
  4. LITHOBID [Suspect]
  5. APIXABAN [Concomitant]
  6. PLAVIX [Concomitant]
  7. ASPIRIN [Concomitant]
  8. SEROQUEL [Concomitant]
  9. LOSARTAN POTASSIUM [Concomitant]
  10. PRILOSEC [Concomitant]
  11. NORVASC [Concomitant]

REACTIONS (1)
  - TOXICITY TO VARIOUS AGENTS [None]
